FAERS Safety Report 4963239-2 (Version None)
Quarter: 2006Q2

REPORT INFORMATION
  Report Type: 
  Country: None (occurrence: None)
  Receive Date: 20060405
  Receipt Date: 20050120
  Transmission Date: 20061013
  Serious: Yes (Hospitalization, Other)
  Sender: FDA-Public Use
  Company Number: US-MERCK-0502USA01108

PATIENT
  Sex: Male
  Weight: 134 kg

DRUGS (1)
  1. VIOXX [Suspect]
     Indication: ARTHRITIS
     Route: 048

REACTIONS (4)
  - CARDIOVASCULAR DISORDER [None]
  - CHEST PAIN [None]
  - OBSTRUCTION [None]
  - THROMBOSIS [None]
